FAERS Safety Report 9695214 (Version 3)
Quarter: 2014Q3

REPORT INFORMATION
  Report Type: Other
  Country: FR (occurrence: FR)
  Receive Date: 20131119
  Receipt Date: 20140811
  Transmission Date: 20150326
  Serious: Yes (Hospitalization)
  Sender: FDA-Public Use
  Company Number: FR-CUBIST PHARMACEUTICAL, INC.-2013CBST001084

PATIENT

DRUGS (14)
  1. TAZOCILLINE [Suspect]
     Active Substance: PIPERACILLIN SODIUM\TAZOBACTAM SODIUM
     Indication: ANTIBIOTIC THERAPY
     Dosage: 4 G / 500 MG, Q8H (INJECTION NOS)
     Route: 065
     Dates: start: 20130801, end: 20130904
  2. TAZOCILLINE [Suspect]
     Active Substance: PIPERACILLIN SODIUM\TAZOBACTAM SODIUM
     Dosage: 12 G, QD
     Route: 065
     Dates: start: 20130820, end: 20130904
  3. MORPHINE [Suspect]
     Active Substance: MORPHINE
     Indication: PRODUCT USED FOR UNKNOWN INDICATION
     Dosage: 7.5 MG, Q4H
     Route: 058
     Dates: start: 20130801, end: 20130805
  4. ACUPAN [Suspect]
     Active Substance: NEFOPAM HYDROCHLORIDE
     Indication: PRODUCT USED FOR UNKNOWN INDICATION
     Dosage: 20 MG, QID, INJECTION
     Route: 042
     Dates: start: 20130801, end: 2013
  5. CUBICIN [Suspect]
     Active Substance: DAPTOMYCIN
     Indication: PRODUCT USED FOR UNKNOWN INDICATION
     Dosage: 5 MG/KG, QD
     Route: 042
     Dates: start: 20130826, end: 20130904
  6. CONTRAMAL [Suspect]
     Active Substance: TRAMADOL HYDROCHLORIDE
     Indication: PRODUCT USED FOR UNKNOWN INDICATION
     Dosage: 100 MG, BID
     Route: 048
     Dates: start: 20130801, end: 2013
  7. VANCOMYCIN [Suspect]
     Active Substance: VANCOMYCIN
     Dosage: 1.25 G, Q12H, INJECTION NOS
     Route: 042
     Dates: start: 20130814, end: 20130826
  8. PARACETAMOL [Concomitant]
     Active Substance: ACETAMINOPHEN
     Indication: PRODUCT USED FOR UNKNOWN INDICATION
     Dosage: 3 G, PRN
     Route: 065
  9. PERFALGAN [Concomitant]
     Active Substance: ACETAMINOPHEN
     Indication: PRODUCT USED FOR UNKNOWN INDICATION
     Dosage: 1 G, QID
     Route: 065
     Dates: end: 20130804
  10. VANCOMYCIN [Suspect]
     Active Substance: VANCOMYCIN
     Indication: ANTIBIOTIC THERAPY
     Dosage: 1.25 G, Q12H, INJECTION NOS
     Route: 042
     Dates: start: 20130801, end: 20130812
  11. ZYVOXID [Suspect]
     Active Substance: LINEZOLID
     Indication: PRODUCT USED FOR UNKNOWN INDICATION
     Dosage: 600 MG, BID
     Route: 048
     Dates: start: 20130812, end: 20130814
  12. INEXIUM                            /01479302/ [Suspect]
     Active Substance: ESOMEPRAZOLE MAGNESIUM
     Indication: PRODUCT USED FOR UNKNOWN INDICATION
     Dosage: 40 MG, QD
     Route: 048
     Dates: start: 20130801, end: 2013
  13. LOVENOX [Concomitant]
     Active Substance: ENOXAPARIN SODIUM
     Indication: PRODUCT USED FOR UNKNOWN INDICATION
     Dosage: 4000 IU, QD
     Route: 058
  14. NICOPATCH [Concomitant]
     Active Substance: NICOTINE
     Indication: PRODUCT USED FOR UNKNOWN INDICATION
     Dosage: 1 DF, QD
     Route: 062
     Dates: end: 2013

REACTIONS (11)
  - Face oedema [Unknown]
  - Liver injury [Recovering/Resolving]
  - Pyrexia [Unknown]
  - Thrombophlebitis superficial [Unknown]
  - Catheter site phlebitis [Unknown]
  - Nausea [Unknown]
  - Cholestasis [Unknown]
  - Hypersensitivity [Unknown]
  - Rash [Recovered/Resolved]
  - Chills [Recovered/Resolved]
  - Eosinophilia [Recovering/Resolving]

NARRATIVE: CASE EVENT DATE: 20130814
